FAERS Safety Report 8128871-6 (Version None)
Quarter: 2012Q1

REPORT INFORMATION
  Report Type: 
  Country: None (occurrence: None)
  Receive Date: 20120210
  Receipt Date: 20110817
  Transmission Date: 20120608
  Serious: Yes (Other)
  Sender: FDA-Public Use
  Company Number: US-BRISTOL-MYERS SQUIBB COMPANY-15674922

PATIENT
  Age: 54 Year
  Sex: Female
  Weight: 103 kg

DRUGS (15)
  1. ORENCIA [Suspect]
     Dosage: : ORENCIA ONE INFUSION A MONTH
     Dates: start: 20060101
  2. LASIX [Concomitant]
     Dosage: 1DF=40 (UNITS NOT SPECIFIED)
  3. LIPITOR [Concomitant]
  4. MAGNESIUM [Concomitant]
  5. PLAQUENIL [Concomitant]
  6. MOBIC [Concomitant]
     Dosage: 1DF=75 (UNITS NOT SPECIFIED)
  7. CALCIUM [Concomitant]
  8. ATENOLOL [Concomitant]
     Dosage: 1DF=50 (UNITS NOT SPECIFIED)
  9. NIACIN [Concomitant]
  10. ALLEGRA-D 12 HOUR [Concomitant]
  11. POTASSIUM CHLORIDE [Concomitant]
  12. ACETAMINOPHEN [Concomitant]
     Dosage: PM
  13. PROGESTERONE [Concomitant]
  14. LUNESTA [Concomitant]
  15. MULTI-VITAMIN [Concomitant]

REACTIONS (1)
  - MULTIPLE SCLEROSIS [None]
